FAERS Safety Report 6189637-X (Version None)
Quarter: 2009Q2

REPORT INFORMATION
  Report Type: 
  Country: None (occurrence: None)
  Receive Date: 20090512
  Receipt Date: 20090512
  Transmission Date: 20091009
  Serious: Yes (Other)
  Sender: FDA-Public Use
  Company Number: None

PATIENT
  Age: 25 Year
  Sex: Female
  Weight: 71.6683 kg

DRUGS (1)
  1. MIRENA [Suspect]
     Indication: CONTRACEPTION
     Dosage: EVERY DAY INTRA CORNUS
     Route: 011
     Dates: start: 20080311, end: 20090301

REACTIONS (5)
  - BREAST PAIN [None]
  - DRUG EXPOSURE VIA BREAST MILK [None]
  - FATIGUE [None]
  - MIGRAINE [None]
  - UTERINE PAIN [None]
